FAERS Safety Report 18062905 (Version 1)
Quarter: 2020Q3

REPORT INFORMATION
  Report Type: Spontaneous
  Country: CA (occurrence: CA)
  Receive Date: 20200724
  Receipt Date: 20200724
  Transmission Date: 20201103
  Serious: Yes (Other)
  Sender: FDA-Public Use
  Company Number: CA-TEVA-2020-CA-1804242

PATIENT
  Age: 47 Year
  Sex: Female

DRUGS (22)
  1. METHOTREXATE. [Suspect]
     Active Substance: METHOTREXATE
     Indication: RHEUMATOID ARTHRITIS
     Route: 065
  2. ANAKINRA [Suspect]
     Active Substance: ANAKINRA
     Route: 065
  3. ENBREL [Suspect]
     Active Substance: ETANERCEPT
     Indication: RHEUMATOID ARTHRITIS
     Route: 065
  4. METHOTREXATE. [Suspect]
     Active Substance: METHOTREXATE
     Indication: RHEUMATOID ARTHRITIS
     Route: 048
  5. ANAKINRA [Suspect]
     Active Substance: ANAKINRA
     Indication: PRODUCT USED FOR UNKNOWN INDICATION
     Route: 065
  6. HUMIRA [Suspect]
     Active Substance: ADALIMUMAB
     Indication: PRODUCT USED FOR UNKNOWN INDICATION
     Route: 058
  7. FENTANYL. [Concomitant]
     Active Substance: FENTANYL
     Indication: RHEUMATOID ARTHRITIS
     Route: 065
  8. FENTANYL. [Concomitant]
     Active Substance: FENTANYL
     Route: 065
  9. LEFLUNOMIDE. [Suspect]
     Active Substance: LEFLUNOMIDE
     Dosage: 20 MILLIGRAM DAILY;
     Route: 048
  10. METHOTREXATE. [Suspect]
     Active Substance: METHOTREXATE
     Route: 048
  11. ORENCIA [Suspect]
     Active Substance: ABATACEPT
     Indication: PRODUCT USED FOR UNKNOWN INDICATION
     Route: 065
  12. METHOTREXATE. [Suspect]
     Active Substance: METHOTREXATE
     Route: 048
  13. METHOTREXATE. [Suspect]
     Active Substance: METHOTREXATE
     Route: 065
  14. ACTEMRA [Suspect]
     Active Substance: TOCILIZUMAB
     Indication: RHEUMATOID ARTHRITIS
     Route: 065
  15. ANAKINRA [Suspect]
     Active Substance: ANAKINRA
     Route: 065
  16. RITUXIMAB. [Concomitant]
     Active Substance: RITUXIMAB
     Route: 065
  17. LEFLUNOMIDE. [Suspect]
     Active Substance: LEFLUNOMIDE
     Indication: PRODUCT USED FOR UNKNOWN INDICATION
     Dosage: 20 MILLIGRAM DAILY;
     Route: 065
  18. METHOTREXATE. [Suspect]
     Active Substance: METHOTREXATE
     Route: 048
  19. REMICADE [Suspect]
     Active Substance: INFLIXIMAB
     Indication: PRODUCT USED FOR UNKNOWN INDICATION
     Route: 042
  20. ADALIMUMAB [Suspect]
     Active Substance: ADALIMUMAB
     Indication: PRODUCT USED FOR UNKNOWN INDICATION
     Route: 058
  21. METHOTREXATE. [Suspect]
     Active Substance: METHOTREXATE
     Route: 065
  22. FENTANYL. [Concomitant]
     Active Substance: FENTANYL
     Route: 065

REACTIONS (14)
  - Liver function test abnormal [Unknown]
  - Osteomyelitis [Unknown]
  - Liver function test increased [Unknown]
  - Drug ineffective [Unknown]
  - Sensitivity to weather change [Unknown]
  - Infection [Unknown]
  - Swelling [Unknown]
  - Therapeutic product effect decreased [Unknown]
  - Joint swelling [Unknown]
  - Loss of personal independence in daily activities [Unknown]
  - Back pain [Unknown]
  - Dyspnoea [Unknown]
  - Musculoskeletal pain [Unknown]
  - Rheumatoid arthritis [Unknown]
